FAERS Safety Report 16583591 (Version 4)
Quarter: 2020Q2

REPORT INFORMATION
  Report Type: Spontaneous
  Country: GB (occurrence: GB)
  Receive Date: 20190717
  Receipt Date: 20200412
  Transmission Date: 20200713
  Serious: Yes (Life-Threatening, Hospitalization, Other)
  Sender: FDA-Public Use
  Company Number: GB-AUROBINDO-AUR-APL-2014-07061

PATIENT
  Age: 32 Year
  Sex: Male

DRUGS (7)
  1. GLUCOSE [Concomitant]
     Active Substance: DEXTROSE
     Indication: PRODUCT USED FOR UNKNOWN INDICATION
     Dosage: UNK
     Route: 042
  2. INSULIN [Concomitant]
     Active Substance: INSULIN NOS
     Indication: PRODUCT USED FOR UNKNOWN INDICATION
     Dosage: 0.25 UNITS/KG/H
     Route: 042
  3. POTASSIUM [Concomitant]
     Active Substance: POTASSIUM
     Indication: PRODUCT USED FOR UNKNOWN INDICATION
     Dosage: UNK
     Route: 042
  4. MIRTAZAPINE. [Suspect]
     Active Substance: MIRTAZAPINE
     Indication: DEPRESSION
     Dosage: UNK
     Route: 065
  5. BISOPROLOL [Suspect]
     Active Substance: BISOPROLOL
     Indication: PRODUCT USED FOR UNKNOWN INDICATION
     Dosage: 200 MG, TOTAL
     Route: 048
  6. HERBESSER [Suspect]
     Active Substance: DILTIAZEM HYDROCHLORIDE
     Indication: PRODUCT USED FOR UNKNOWN INDICATION
     Dosage: 5040 MILLIGRAM, TOTAL
     Route: 048
  7. SIMVASTATIN FILM-COATED TABLET [Suspect]
     Active Substance: SIMVASTATIN
     Indication: PRODUCT USED FOR UNKNOWN INDICATION
     Dosage: 280 MG, TOTAL
     Route: 048

REACTIONS (27)
  - Coma scale abnormal [Unknown]
  - Blood creatinine increased [Recovering/Resolving]
  - Atrioventricular block complete [Recovered/Resolved]
  - Vasodilatation [Recovering/Resolving]
  - Hypothermia [Unknown]
  - PCO2 decreased [Recovering/Resolving]
  - Intentional overdose [Recovering/Resolving]
  - Myopathy [Recovering/Resolving]
  - Heart rate decreased [Unknown]
  - Treatment noncompliance [Unknown]
  - Atrioventricular block [Recovering/Resolving]
  - Coma [Recovered/Resolved]
  - Hypotension [Recovered/Resolved]
  - Respiratory acidosis [Recovering/Resolving]
  - Blood glucose increased [Recovering/Resolving]
  - Hypokalaemia [Recovering/Resolving]
  - Cardiac arrest [Recovered/Resolved]
  - Bradycardia [Recovered/Resolved]
  - Oliguria [Recovering/Resolving]
  - PO2 decreased [Recovering/Resolving]
  - Rhabdomyolysis [Recovering/Resolving]
  - Blood pH decreased [Recovering/Resolving]
  - Metabolic acidosis [Recovering/Resolving]
  - Blood lactic acid increased [Recovering/Resolving]
  - Muscular weakness [Recovering/Resolving]
  - Hypoxia [Recovering/Resolving]
  - Blood creatine phosphokinase increased [Recovering/Resolving]
